FAERS Safety Report 9225235 (Version 3)
Quarter: 2013Q3

REPORT INFORMATION
  Report Type: Report from Study
  Country: US (occurrence: US)
  Receive Date: 20130411
  Receipt Date: 20130709
  Transmission Date: 20140515
  Serious: Yes (Hospitalization)
  Sender: FDA-Public Use
  Company Number: PHEH2013US007867

PATIENT
  Age: 61 Year
  Sex: Male

DRUGS (9)
  1. GLEEVEC [Suspect]
     Indication: CHRONIC MYELOID LEUKAEMIA
     Dosage: 400 MG, DAILY
     Route: 048
     Dates: start: 20130320
  2. NORVASC [Concomitant]
     Dosage: 10 MG, UNK
  3. LIPITOR [Concomitant]
     Dosage: 20 MG, UNK
  4. SYNTHROID [Concomitant]
     Dosage: 100 UG, UNK
  5. ADVAIR DISKUS [Concomitant]
     Dosage: 100/50, UNK
  6. METOPROLOL/HCTZ [Concomitant]
     Dosage: 100-25, UNK
  7. ASPIRIN [Concomitant]
     Dosage: 81 MG, UNK
  8. PLAVIX [Concomitant]
     Dosage: 75 MG, UNK
  9. POTASSIUM [Concomitant]
     Dosage: UNK UKN, UNK

REACTIONS (12)
  - Nephrolithiasis [Unknown]
  - Dehydration [Unknown]
  - Malaise [Unknown]
  - Diarrhoea [Recovered/Resolved]
  - Vomiting [Recovered/Resolved]
  - Pain [Unknown]
  - Fatigue [Unknown]
  - Muscle spasms [Not Recovered/Not Resolved]
  - Bone pain [Unknown]
  - Depressed mood [Unknown]
  - Blood thyroid stimulating hormone increased [Unknown]
  - Nausea [Recovered/Resolved]
